FAERS Safety Report 20077901 (Version 1)
Quarter: 2021Q4

REPORT INFORMATION
  Report Type: Spontaneous
  Country: IE (occurrence: IE)
  Receive Date: 20211116
  Receipt Date: 20211116
  Transmission Date: 20220303
  Serious: Yes (Hospitalization)
  Sender: FDA-Public Use
  Company Number: IE-SUN PHARMACEUTICAL INDUSTRIES LTD-2021R1-317450

PATIENT
  Age: 78 Year
  Sex: Female

DRUGS (2)
  1. DIGOXIN [Suspect]
     Active Substance: DIGOXIN
     Indication: Hyperkalaemia
     Dosage: UNK
     Route: 042
  2. DIGOXIN [Suspect]
     Active Substance: DIGOXIN
     Dosage: 125 MCG, OD
     Route: 065

REACTIONS (2)
  - Chorea [Recovered/Resolved]
  - Toxicity to various agents [Recovered/Resolved]
